FAERS Safety Report 4516250-X (Version None)
Quarter: 2004Q4

REPORT INFORMATION
  Report Type: 
  Country: None (occurrence: None)
  Receive Date: 20041129
  Receipt Date: 20041115
  Transmission Date: 20050328
  Serious: Yes (Disabling)
  Sender: FDA-Public Use
  Company Number: 2004097390

PATIENT
  Sex: Female

DRUGS (1)
  1. DETROL TABLET (TOLTERODINE L-TARTRATE) [Suspect]
     Indication: BLADDER DISORDER
     Dosage: 4 MG (4 MG), ORAL
     Route: 048
     Dates: start: 20040311, end: 20040313

REACTIONS (4)
  - ABDOMINAL PAIN LOWER [None]
  - BLADDER PAIN [None]
  - BLADDER PROLAPSE [None]
  - DYSSTASIA [None]
